FAERS Safety Report 25062118 (Version 1)
Quarter: 2025Q1

REPORT INFORMATION
  Report Type: Report from Study
  Country: CH (occurrence: CH)
  Receive Date: 20250311
  Receipt Date: 20250311
  Transmission Date: 20250408
  Serious: Yes (Death)
  Sender: ROCHE
  Company Number: CH-ROCHE-10000172241

PATIENT
  Age: 49 Year
  Sex: Female

DRUGS (2)
  1. EVRYSDI [Suspect]
     Active Substance: RISDIPLAM
     Indication: Spinal muscular atrophy
     Route: 048
     Dates: start: 20230118
  2. DULOXETINE [Concomitant]
     Active Substance: DULOXETINE
     Dates: start: 20150827, end: 20240216

REACTIONS (1)
  - Death [Fatal]

NARRATIVE: CASE EVENT DATE: 20240216
